FAERS Safety Report 8834419 (Version 1)
Quarter: 2012Q4

REPORT INFORMATION
  Report Type: 
  Country: TR (occurrence: TR)
  Receive Date: 20121010
  Receipt Date: 20121010
  Transmission Date: 20130627
  Serious: Yes (Life-Threatening, Other)
  Sender: FDA-Public Use
  Company Number: TR-ROXANE LABORATORIES, INC.-2012-RO-01979RO

PATIENT
  Age: 13 Year
  Sex: Female

DRUGS (12)
  1. METHOTREXATE [Suspect]
     Indication: NON-HODGKIN^S LYMPHOMA
  2. LEUCOVORIN CALCIUM [Suspect]
  3. FLUCONAZOLE [Suspect]
     Indication: FUNGAL OESOPHAGITIS
  4. CYTOSINE [Suspect]
     Indication: NON-HODGKIN^S LYMPHOMA
  5. ETOPOSID [Suspect]
     Indication: NON-HODGKIN^S LYMPHOMA
  6. FOLINIC ACID [Suspect]
  7. CEFTAZIDIME [Suspect]
     Indication: FEBRILE NEUTROPENIA
  8. NETILMICIN [Suspect]
     Indication: FEBRILE NEUTROPENIA
  9. TEICOPLANIN [Suspect]
     Indication: FEBRILE NEUTROPENIA
  10. CASPOFUNGIN [Suspect]
     Indication: FUNGAL OESOPHAGITIS
  11. DOPAMINE [Suspect]
     Indication: HYPOTENSION
  12. UNSPECIFIED INGREDIENT [Suspect]
     Indication: PYREXIA

REACTIONS (12)
  - Intra-abdominal haemorrhage [Recovered/Resolved]
  - Pleural haemorrhage [Recovered/Resolved]
  - Tumour lysis syndrome [Unknown]
  - Toxicity to various agents [Unknown]
  - Mucosal inflammation [Unknown]
  - Febrile neutropenia [Unknown]
  - Fungal oesophagitis [Unknown]
  - Hypokalaemia [Unknown]
  - Shock haemorrhagic [Unknown]
  - Renal failure acute [Unknown]
  - Hypovolaemia [Unknown]
  - Pulmonary oedema [Unknown]
